FAERS Safety Report 26054393 (Version 1)
Quarter: 2025Q4

REPORT INFORMATION
  Report Type: Spontaneous
  Country: JP (occurrence: JP)
  Receive Date: 20251117
  Receipt Date: 20251117
  Transmission Date: 20260119
  Serious: Yes (Death)
  Sender: UCB
  Company Number: JP-UCBJ-CD202514923UCBPHAPROD

PATIENT
  Age: 86 Year

DRUGS (1)
  1. RYSTIGGO [Suspect]
     Active Substance: ROZANOLIXIZUMAB-NOLI
     Indication: Product used for unknown indication
     Dosage: UNK

REACTIONS (1)
  - Cardio-respiratory arrest [Fatal]
